FAERS Safety Report 25522421 (Version 1)
Quarter: 2025Q3

REPORT INFORMATION
  Report Type: Spontaneous
  Country: EU (occurrence: EU)
  Receive Date: 20250707
  Receipt Date: 20250707
  Transmission Date: 20251021
  Serious: No
  Sender: ALKEM
  Company Number: EU-ALKEM LABORATORIES LIMITED-FR-ALKEM-2024-15930

PATIENT
  Sex: Male

DRUGS (11)
  1. DRONABINOL [Suspect]
     Active Substance: DRONABINOL
     Indication: Central pain syndrome
     Route: 048
     Dates: start: 20240808, end: 20240926
  2. DRONABINOL [Suspect]
     Active Substance: DRONABINOL
     Indication: Cauda equina syndrome
     Dosage: 2.5 MILLIGRAM, QD, (SOFT CAPSULE MOLLE)
     Route: 065
  3. DRONABINOL [Suspect]
     Active Substance: DRONABINOL
     Dosage: 2.5 MILLIGRAM, BID, (SOFT CAPSULE MOLLE)
     Route: 048
  4. DRONABINOL [Suspect]
     Active Substance: DRONABINOL
     Dosage: 2.5 MILLIGRAM, TID, (1 CAPSULE IN THE MORNING AT NOON AND IN THE EVENING), (CAPSULE MOLLE)
     Route: 048
  5. DRONABINOL [Suspect]
     Active Substance: DRONABINOL
     Route: 065
  6. DRONABINOL [Suspect]
     Active Substance: DRONABINOL
     Dosage: 2.5 MILLIGRAM, QD (SOFT CAPSULE, ONE CAPSULE DAILY)
     Route: 048
  7. DRONABINOL [Suspect]
     Active Substance: DRONABINOL
     Dosage: 2.5 MILLIGRAM, TID (REINTRODUCED AT 3 TABLETS A DAY)
     Route: 065
  8. DRONABINOL [Suspect]
     Active Substance: DRONABINOL
     Dosage: 2.5 MILLIGRAM, TID (REINTRODUCED AT 4 TABLETS A DAY)
     Route: 065
  9. AMLODIPINE BESYLATE [Concomitant]
     Active Substance: AMLODIPINE BESYLATE
     Indication: Product used for unknown indication
     Route: 065
  10. CANNABIDIOL [Concomitant]
     Active Substance: CANNABIDIOL
     Indication: Product used for unknown indication
     Route: 065
  11. DAFALGAN [Concomitant]
     Active Substance: ACETAMINOPHEN
     Indication: Product used for unknown indication
     Route: 065

REACTIONS (6)
  - Sedation [Unknown]
  - Somnolence [Recovered/Resolved]
  - Somnolence [Recovered/Resolved]
  - Off label use [Unknown]
  - Prescribed underdose [Unknown]
  - Product prescribing issue [Unknown]

NARRATIVE: CASE EVENT DATE: 20240901
